FAERS Safety Report 7968613-8 (Version None)
Quarter: 2011Q4

REPORT INFORMATION
  Report Type: 
  Country: None (occurrence: None)
  Receive Date: 20111209
  Receipt Date: 20111129
  Transmission Date: 20120403
  Serious: Yes (Other)
  Sender: FDA-Public Use
  Company Number: US-JNJFOC-20111200568

PATIENT
  Sex: Male
  Weight: 79.38 kg

DRUGS (6)
  1. CIPROFLOXACIN [Concomitant]
     Indication: COLITIS ULCERATIVE
     Route: 048
     Dates: start: 20040101
  2. FLAGYL [Concomitant]
     Indication: COLITIS ULCERATIVE
     Route: 048
     Dates: start: 20040101
  3. CELEXA [Concomitant]
     Indication: DEPRESSION
     Route: 048
     Dates: start: 20040101
  4. REMICADE [Suspect]
     Indication: COLITIS ULCERATIVE
     Route: 042
     Dates: start: 20110101, end: 20111012
  5. LOMOTIL [Concomitant]
     Indication: DIARRHOEA
     Route: 048
     Dates: start: 20040101
  6. NAPROXEN [Concomitant]
     Indication: ARTHRITIS
     Route: 048
     Dates: start: 19940101

REACTIONS (5)
  - ORAL DISCOMFORT [None]
  - IMMUNE SYSTEM DISORDER [None]
  - SINUSITIS [None]
  - DRUG EFFECT DECREASED [None]
  - OROPHARYNGEAL BLISTERING [None]
